FAERS Safety Report 25077982 (Version 1)
Quarter: 2025Q1

REPORT INFORMATION
  Report Type: Spontaneous
  Country: US (occurrence: US)
  Receive Date: 20250314
  Receipt Date: 20250314
  Transmission Date: 20250408
  Serious: No
  Sender: BRISTOL-MYERS SQUIBB COMPANY
  Company Number: US-BRISTOL-MYERS SQUIBB COMPANY-2025-038071

PATIENT
  Age: 66 Year
  Sex: Female

DRUGS (1)
  1. THALOMID [Suspect]
     Active Substance: THALIDOMIDE
     Indication: Gastrointestinal haemorrhage
     Dosage: TAKE 1 CAPSULE WHOLE BY MOUTH ON AN EMPTY STOMACH AT LEAST 1 HOUR AFTER EATING A MEAL EVERY MORNING
     Route: 048

REACTIONS (2)
  - Nausea [Unknown]
  - Off label use [Unknown]
